FAERS Safety Report 14673064 (Version 1)
Quarter: 2018Q1

REPORT INFORMATION
  Report Type: Spontaneous
  Country: US (occurrence: US)
  Receive Date: 20180323
  Receipt Date: 20180323
  Transmission Date: 20180509
  Serious: Yes (Other)
  Sender: FDA-Public Use
  Company Number: US-TEVA-2018-US-872325

PATIENT
  Sex: Female

DRUGS (1)
  1. METFORMIN HYDROCHLORIDE EXTENDED RELEASE TABLET 500MG AND 1000MG [Suspect]
     Active Substance: METFORMIN HYDROCHLORIDE
     Dates: start: 201802

REACTIONS (2)
  - Diarrhoea [Unknown]
  - Abdominal pain [Unknown]

NARRATIVE: CASE EVENT DATE: 201802
